FAERS Safety Report 5405393-4 (Version None)
Quarter: 2007Q3

REPORT INFORMATION
  Report Type: 
  Country: None (occurrence: None)
  Receive Date: 20070803
  Receipt Date: 20070725
  Transmission Date: 20080115
  Serious: Yes (Other)
  Sender: FDA-Public Use
  Company Number: US-PFIZER INC-2007051952

PATIENT
  Age: 89 Year
  Sex: Female
  Weight: 66.7 kg

DRUGS (2)
  1. FRAGMIN [Suspect]
     Indication: PROPHYLAXIS
     Route: 058
     Dates: start: 20070521, end: 20070613
  2. ZYVOX [Suspect]
     Route: 048
     Dates: start: 20070611, end: 20070625

REACTIONS (1)
  - HAEMATOMA [None]
